FAERS Safety Report 21483115 (Version 3)
Quarter: 2022Q4

REPORT INFORMATION
  Report Type: Spontaneous
  Country: HR (occurrence: HR)
  Receive Date: 20221020
  Receipt Date: 20221117
  Transmission Date: 20230112
  Serious: Yes (Other)
  Sender: FDA-Public Use
  Company Number: HR-BAYER-2022P018567

PATIENT
  Age: 76 Year
  Sex: Male

DRUGS (8)
  1. XARELTO [Suspect]
     Active Substance: RIVAROXABAN
     Indication: Atrial fibrillation
     Dosage: 15 MG
     Route: 048
     Dates: start: 202010
  2. NEBIVOLOL [Concomitant]
     Active Substance: NEBIVOLOL
     Dosage: 5 MG, OM
  3. MONOPIN [Concomitant]
     Dosage: 4 MG
  4. SIMVASTATIN [Concomitant]
     Active Substance: SIMVASTATIN
     Dosage: 20 MG
  5. GLIQUIDONE [Concomitant]
     Active Substance: GLIQUIDONE
     Dosage: 30 MG, TID
  6. FUROSEMIDE [Concomitant]
     Active Substance: FUROSEMIDE
     Dosage: 3 DF
  7. POTASSIUM BICARBONATE;POTASSIUM CITRATE [Concomitant]
     Dosage: UNK
  8. CAPECITABINE [Concomitant]
     Active Substance: CAPECITABINE
     Dosage: UNK
     Dates: start: 201503, end: 202204

REACTIONS (3)
  - Aortic stenosis [Not Recovered/Not Resolved]
  - Aortic valve incompetence [Unknown]
  - Cardiac failure [Recovering/Resolving]

NARRATIVE: CASE EVENT DATE: 20210801
